FAERS Safety Report 15221511 (Version 1)
Quarter: 2018Q3

REPORT INFORMATION
  Report Type: Spontaneous
  Country: US (occurrence: US)
  Receive Date: 20180731
  Receipt Date: 20180731
  Transmission Date: 20181010
  Serious: Yes (Hospitalization, Other)
  Sender: FDA-Public Use
  Company Number: US-AMGEN-USASP2018102185

PATIENT
  Age: 59 Year
  Sex: Male

DRUGS (4)
  1. XGEVA [Suspect]
     Active Substance: DENOSUMAB
     Indication: PROSTATE CANCER METASTATIC
     Dosage: UNK
     Route: 065
  2. CASODEX [Concomitant]
     Active Substance: BICALUTAMIDE
     Indication: PROSTATE CANCER METASTATIC
  3. XGEVA [Suspect]
     Active Substance: DENOSUMAB
     Indication: METASTASES TO BONE
  4. CABAZITAXEL [Concomitant]
     Active Substance: CABAZITAXEL
     Indication: PROSTATE CANCER METASTATIC

REACTIONS (4)
  - Hypophosphataemia [Unknown]
  - Hypocalcaemia [Unknown]
  - Vitamin D deficiency [Recovering/Resolving]
  - Neutropenic colitis [Unknown]
